FAERS Safety Report 6157856-4 (Version None)
Quarter: 2009Q2

REPORT INFORMATION
  Report Type: 
  Country: None (occurrence: None)
  Receive Date: 20090414
  Receipt Date: 20090330
  Transmission Date: 20091009
  Serious: Yes (Hospitalization, Other)
  Sender: FDA-Public Use
  Company Number: ADE2009-0537

PATIENT
  Age: 2 Year
  Sex: Female

DRUGS (5)
  1. AMOXICILLIN [Suspect]
     Indication: BRONCHOPNEUMONIA
  2. CEFTRIAXONE [Suspect]
     Dosage: 100MG/KG
  3. OXACILLIN [Suspect]
     Dosage: 200MG/KG
  4. METHYLPREDNISOLONE 4MG TAB [Concomitant]
  5. CYCLOPHOSPHAMIDE [Concomitant]

REACTIONS (14)
  - ALANINE AMINOTRANSFERASE INCREASED [None]
  - ASPARTATE AMINOTRANSFERASE INCREASED [None]
  - CARDIAC MURMUR [None]
  - DRUG ERUPTION [None]
  - HEPATOMEGALY [None]
  - LUNG INFILTRATION [None]
  - LYMPHOCYTE MORPHOLOGY ABNORMAL [None]
  - MYOCARDITIS [None]
  - OEDEMA PERIPHERAL [None]
  - PANCYTOPENIA [None]
  - PYREXIA [None]
  - SKIN NECROSIS [None]
  - SYSTEMIC LUPUS ERYTHEMATOSUS [None]
  - VASCULITIS [None]
